FAERS Safety Report 18721855 (Version 1)
Quarter: 2021Q1

REPORT INFORMATION
  Report Type: Spontaneous
  Country: FR (occurrence: FR)
  Receive Date: 20210111
  Receipt Date: 20210111
  Transmission Date: 20210419
  Serious: Yes (Hospitalization)
  Sender: FDA-Public Use
  Company Number: FR-UCBSA-2021000256

PATIENT
  Age: 87 Year
  Sex: Female

DRUGS (2)
  1. VALIUM [Suspect]
     Active Substance: DIAZEPAM
     Indication: TONIC CLONIC MOVEMENTS
     Dosage: UNK
     Route: 030
     Dates: start: 20190218, end: 20190221
  2. KEPPRA [Suspect]
     Active Substance: LEVETIRACETAM
     Indication: TONIC CLONIC MOVEMENTS
     Dosage: 1000 MILLIGRAM, DAILY
     Route: 048
     Dates: start: 20190215, end: 20190312

REACTIONS (3)
  - Quadriparesis [Recovered/Resolved]
  - Coma [Recovered/Resolved]
  - Altered state of consciousness [Recovered/Resolved]

NARRATIVE: CASE EVENT DATE: 20190220
